FAERS Safety Report 4347523-1 (Version None)
Quarter: 2004Q2

REPORT INFORMATION
  Report Type: 
  Country: None (occurrence: None)
  Receive Date: 20040421
  Receipt Date: 20040212
  Transmission Date: 20050107
  Serious: Yes (Other)
  Sender: FDA-Public Use
  Company Number: 2004011186

PATIENT
  Sex: Male

DRUGS (1)
  1. RELPAX [Suspect]
     Indication: ILL-DEFINED DISORDER

REACTIONS (3)
  - HYPERSENSITIVITY [None]
  - LOCAL SWELLING [None]
  - PARAESTHESIA [None]
